FAERS Safety Report 17291802 (Version 1)
Quarter: 2020Q1

REPORT INFORMATION
  Report Type: Spontaneous
  Country: US (occurrence: US)
  Receive Date: 20200118
  Receipt Date: 20200118
  Transmission Date: 20200409
  Serious: Yes (Other)
  Sender: FDA-Public Use
  Company Number: None

PATIENT
  Age: 22 Year
  Sex: Female
  Weight: 133.2 kg

DRUGS (8)
  1. PIRMELLA 1/35 [Concomitant]
     Active Substance: ETHINYL ESTRADIOL\NORETHINDRONE
  2. SERTRALINE [Concomitant]
     Active Substance: SERTRALINE HYDROCHLORIDE
  3. BENADRYL ALLERGY LIQUI-GEL FREE CAPSULES [Concomitant]
  4. EQUATE ALLERGY LIQUI-GEL DYE FEE CAPSULES [Concomitant]
  5. ALPRAZOLAM. [Concomitant]
     Active Substance: ALPRAZOLAM
  6. EQUATE IBUPROFEN [Concomitant]
     Active Substance: IBUPROFEN
  7. NORTREL [Suspect]
     Active Substance: ETHINYL ESTRADIOL\NORETHINDRONE
     Indication: CONTRACEPTION
     Dosage: ?          QUANTITY:1 TABLET(S);?
     Route: 048
     Dates: start: 20200112, end: 20200114
  8. HYDROXYZPAM [Concomitant]

REACTIONS (8)
  - Dry mouth [None]
  - Feeling hot [None]
  - Urticaria [None]
  - Pruritus [None]
  - Product substitution issue [None]
  - Feeling abnormal [None]
  - Erythema [None]
  - Photosensitivity reaction [None]

NARRATIVE: CASE EVENT DATE: 20200113
